FAERS Safety Report 25188205 (Version 2)
Quarter: 2025Q2

REPORT INFORMATION
  Report Type: Spontaneous
  Country: US (occurrence: US)
  Receive Date: 20250411
  Receipt Date: 20250625
  Transmission Date: 20250717
  Serious: No
  Sender: ALEXION PHARMACEUTICALS
  Company Number: US-AstraZeneca-CH-00847013AP

PATIENT

DRUGS (1)
  1. BREZTRI [Suspect]
     Active Substance: BUDESONIDE\FORMOTEROL\GLYCOPYRROLATE
     Indication: Product used for unknown indication

REACTIONS (4)
  - Product dose omission issue [Unknown]
  - Device malfunction [Unknown]
  - Corrective lens user [Unknown]
  - Product dispensing error [Unknown]
